FAERS Safety Report 8052647-1 (Version None)
Quarter: 2012Q1

REPORT INFORMATION
  Report Type: 
  Country: None (occurrence: None)
  Receive Date: 20120118
  Receipt Date: 20120111
  Transmission Date: 20120608
  Serious: Yes (Other)
  Sender: FDA-Public Use
  Company Number: US-JNJFOC-20120104206

PATIENT
  Sex: Female

DRUGS (3)
  1. PREDNISONE TAB [Concomitant]
     Indication: ARTHRITIS
     Route: 048
     Dates: end: 20110927
  2. METHOTREXATE [Concomitant]
     Indication: ARTHRITIS
     Route: 048
     Dates: end: 20110927
  3. REMICADE [Suspect]
     Indication: ARTHRITIS
     Route: 042
     Dates: end: 20110927

REACTIONS (3)
  - ROTATOR CUFF SYNDROME [None]
  - ASTHENIA [None]
  - FALL [None]
